FAERS Safety Report 6308302-9 (Version None)
Quarter: 2009Q3

REPORT INFORMATION
  Report Type: 
  Country: None (occurrence: None)
  Receive Date: 20090813
  Receipt Date: 20090810
  Transmission Date: 20100115
  Serious: Yes (Hospitalization, Other)
  Sender: FDA-Public Use
  Company Number: US-MERCK-0209USA00057

PATIENT
  Age: 54 Year
  Sex: Female
  Weight: 88 kg

DRUGS (8)
  1. SINGULAIR [Suspect]
     Indication: ASTHMA
     Route: 048
     Dates: start: 20020719, end: 20020814
  2. AVONEX [Concomitant]
     Route: 030
     Dates: start: 19970101
  3. PREMARIN [Concomitant]
     Route: 048
     Dates: start: 20000101
  4. VITAMINS (UNSPECIFIED) [Concomitant]
     Route: 065
  5. PROZAC [Concomitant]
     Route: 048
     Dates: start: 20000101
  6. ZYRTEC [Concomitant]
     Route: 065
  7. FLOVENT [Concomitant]
  8. COMBIVENT [Concomitant]
     Route: 065

REACTIONS (1)
  - HEPATITIS [None]
